FAERS Safety Report 9877934 (Version 1)
Quarter: 2014Q1

REPORT INFORMATION
  Report Type: Spontaneous
  Country: JP (occurrence: JP)
  Receive Date: 20140206
  Receipt Date: 20140206
  Transmission Date: 20141002
  Serious: Yes (Hospitalization)
  Sender: FDA-Public Use
  Company Number: JP-TEVA-460632ISR

PATIENT
  Age: 51 Year
  Sex: Male

DRUGS (13)
  1. E-FEN BUCCAL TABLET [Suspect]
     Indication: CANCER PAIN
     Dosage: 800 MICROGRAM DAILY;
     Route: 002
     Dates: start: 20131114, end: 20131228
  2. METHAPAIN [Suspect]
     Indication: CANCER PAIN
     Dosage: UNIT DOSE: 5-10MG; DAILY DOSE: 15-45MG
     Route: 048
     Dates: start: 20131115, end: 20131228
  3. FENTANYL [Concomitant]
     Dosage: 50.4 MILLIGRAM DAILY;
     Route: 062
     Dates: start: 20130817
  4. FENTANYL [Concomitant]
     Dosage: 36 MILLIGRAM DAILY;
     Route: 051
     Dates: start: 20131023
  5. GABAPEN [Concomitant]
     Dosage: 600 MILLIGRAM DAILY;
     Route: 048
     Dates: start: 20131104, end: 20131215
  6. ACETAMINOPHEN [Concomitant]
     Dosage: 300 MILLIGRAM DAILY;
     Route: 048
     Dates: start: 20131215, end: 20131224
  7. ROPION [Concomitant]
     Dosage: 50 MILLIGRAM DAILY;
     Route: 051
     Dates: start: 20131220, end: 20131228
  8. FUROSEMIDE [Concomitant]
     Dosage: 20 MILLIGRAM DAILY;
     Route: 051
     Dates: start: 20131020
  9. SOLDACTONE [Concomitant]
     Dosage: 100 MILLIGRAM DAILY;
     Route: 051
     Dates: start: 20131226, end: 20140106
  10. TAIPERACILIN [Concomitant]
     Route: 050
     Dates: start: 20131216, end: 20131223
  11. CEFMETAZOLE SODIUM [Concomitant]
     Dosage: 2000 MILLIGRAM DAILY;
     Route: 051
     Dates: start: 20131224, end: 20140101
  12. FENTANYL [Concomitant]
     Dosage: 1.5 MILLIGRAM DAILY;
     Route: 051
  13. MIYA BM [Concomitant]
     Dosage: 3000 MILLIGRAM DAILY;
     Route: 048
     Dates: end: 20131228

REACTIONS (1)
  - Torsade de pointes [Recovering/Resolving]
